FAERS Safety Report 5427166-9 (Version None)
Quarter: 2007Q3

REPORT INFORMATION
  Report Type: 
  Country: None (occurrence: None)
  Receive Date: 20070828
  Receipt Date: 20070820
  Transmission Date: 20080115
  Serious: Yes (Other)
  Sender: FDA-Public Use
  Company Number: PHEH2006US03540

PATIENT
  Age: 44 Year
  Sex: Female
  Weight: 112.93 kg

DRUGS (2)
  1. AREDIA [Suspect]
     Indication: METASTASES TO BONE
     Dosage: UNK,UNK
     Dates: start: 19991202
  2. ZOMETA [Suspect]
     Indication: METASTASES TO BONE
     Dosage: UNK,UNK
     Dates: end: 20060209

REACTIONS (15)
  - ACTINOMYCOSIS [None]
  - ARTIFICIAL CROWN PROCEDURE [None]
  - BONE LESION [None]
  - BREAST CANCER METASTATIC [None]
  - DENTAL CARIES [None]
  - EXCESSIVE GRANULATION TISSUE [None]
  - FISTULA [None]
  - OSTEITIS [None]
  - OSTEONECROSIS [None]
  - RADIOTHERAPY [None]
  - TOOTH DISORDER [None]
  - TOOTH EXTRACTION [None]
  - TOOTH INFECTION [None]
  - TOOTHACHE [None]
  - WOUND DEBRIDEMENT [None]
